FAERS Safety Report 8126234-0 (Version None)
Quarter: 2012Q1

REPORT INFORMATION
  Report Type: 
  Country: None (occurrence: None)
  Receive Date: 20120209
  Receipt Date: 20120207
  Transmission Date: 20120608
  Serious: Yes (Hospitalization)
  Sender: FDA-Public Use
  Company Number: PHEH2012US003254

PATIENT
  Sex: Male

DRUGS (2)
  1. EXJADE [Suspect]
     Indication: IRON OVERLOAD
     Dosage: 2000 MG, DAILY
     Route: 048
     Dates: start: 20111219
  2. EXJADE [Suspect]
     Indication: MYELODYSPLASTIC SYNDROME

REACTIONS (3)
  - MOOD ALTERED [None]
  - CRYING [None]
  - DEPRESSION [None]
